FAERS Safety Report 9550800 (Version 2)
Quarter: 2014Q2

REPORT INFORMATION
  Report Type: Spontaneous
  Country: US (occurrence: US)
  Receive Date: 20130924
  Receipt Date: 20140402
  Transmission Date: 20141212
  Serious: Yes (Hospitalization)
  Sender: FDA-Public Use
  Company Number: US-SANOFI-AVENTIS-2013SA038249

PATIENT
  Age: 43 Year
  Sex: Female
  Weight: 90 kg

DRUGS (13)
  1. AUBAGIO [Suspect]
     Indication: MULTIPLE SCLEROSIS
     Dosage: TAKEN FROM-28 DAYS AGO
     Route: 048
     Dates: start: 20130313, end: 20130408
  2. AUBAGIO [Suspect]
     Indication: MULTIPLE SCLEROSIS
     Dosage: TAKEN FROM-28 DAYS AGO
     Route: 048
     Dates: end: 201307
  3. AUBAGIO [Suspect]
     Indication: MULTIPLE SCLEROSIS
     Dosage: TAKEN FROM-28 DAYS AGO
     Route: 048
     Dates: start: 20131019
  4. XANAX [Concomitant]
  5. VICODIN [Concomitant]
     Dosage: DOSE- 5-300 MG
  6. VITAMIN B12 [Concomitant]
     Dosage: DOSE- 1000 CR
  7. POTASSIUM [Concomitant]
  8. VITAMIN D [Concomitant]
     Dosage: DOSE:1000 UNIT(S)
  9. MELATONIN [Concomitant]
  10. ATENOLOL [Concomitant]
  11. ALL OTHER THERAPEUTIC PRODUCTS [Concomitant]
  12. ADDERALL [Concomitant]
  13. CIPRO [Concomitant]

REACTIONS (10)
  - Multiple sclerosis relapse [Unknown]
  - Urinary tract infection [Not Recovered/Not Resolved]
  - Cystitis [Not Recovered/Not Resolved]
  - Urine analysis abnormal [Not Recovered/Not Resolved]
  - Blood urine present [Not Recovered/Not Resolved]
  - Dysuria [Not Recovered/Not Resolved]
  - Back pain [Recovered/Resolved]
  - Limb discomfort [Not Recovered/Not Resolved]
  - Memory impairment [Unknown]
  - Drug dose omission [Unknown]
